FAERS Safety Report 17187056 (Version 2)
Quarter: 2020Q2

REPORT INFORMATION
  Report Type: Report from Study
  Country: US (occurrence: US)
  Receive Date: 20191220
  Receipt Date: 20200629
  Transmission Date: 20200713
  Serious: Yes (Hospitalization)
  Sender: FDA-Public Use
  Company Number: US-JNJFOC-20191232634

PATIENT
  Age: 13 Year
  Sex: Male

DRUGS (18)
  1. INFLIXIMAB, RECOMBINANT [Suspect]
     Active Substance: INFLIXIMAB
     Route: 042
     Dates: start: 20190320, end: 20190501
  2. CIPROFLOXACIN. [Concomitant]
     Active Substance: CIPROFLOXACIN
  3. 5-ASA [Concomitant]
     Active Substance: MESALAMINE
     Route: 054
  4. PARACETAMOL [Concomitant]
     Active Substance: ACETAMINOPHEN
  5. FAMOTIDINE. [Concomitant]
     Active Substance: FAMOTIDINE
  6. TYLENOL [Concomitant]
     Active Substance: ACETAMINOPHEN
  7. HUMIRA [Concomitant]
     Active Substance: ADALIMUMAB
     Dates: start: 20190509
  8. ONDANSETRON [Concomitant]
     Active Substance: ONDANSETRON
  9. HYOSCYAMINE. [Concomitant]
     Active Substance: HYOSCYAMINE
  10. DICYCLOMINE                        /00068601/ [Concomitant]
     Active Substance: DICYCLOMINE HYDROCHLORIDE
  11. LOPERAMIDE [Concomitant]
     Active Substance: LOPERAMIDE
  12. OMEPRAZOLE. [Concomitant]
     Active Substance: OMEPRAZOLE
  13. AMITRIPTYLINE [Concomitant]
     Active Substance: AMITRIPTYLINE
  14. PRAMOXINE [Concomitant]
     Active Substance: PRAMOXINE
  15. INFLIXIMAB, RECOMBINANT [Suspect]
     Active Substance: INFLIXIMAB
     Indication: INFLAMMATORY BOWEL DISEASE
     Route: 042
     Dates: start: 20121129
  16. HUMIRA [Concomitant]
     Active Substance: ADALIMUMAB
     Dates: start: 20140102
  17. METRONIDAZOLE. [Concomitant]
     Active Substance: METRONIDAZOLE
  18. MIDAZOLAM. [Concomitant]
     Active Substance: MIDAZOLAM
     Indication: ANXIETY
     Route: 048

REACTIONS (1)
  - Abdominal pain [Recovered/Resolved]

NARRATIVE: CASE EVENT DATE: 20191203
